FAERS Safety Report 23159647 (Version 1)
Quarter: 2023Q4

REPORT INFORMATION
  Report Type: Spontaneous
  Country: ES (occurrence: ES)
  Receive Date: 20231108
  Receipt Date: 20231108
  Transmission Date: 20240110
  Serious: Yes (Death, Other)
  Sender: FDA-Public Use
  Company Number: ES-SA-2018SA295713

PATIENT
  Age: 1 Month
  Sex: Male
  Weight: 1 kg

DRUGS (1)
  1. HYDROCORTISONE [Suspect]
     Active Substance: HYDROCORTISONE
     Indication: Hydrocephalus
     Dosage: DOSE DESCRIPTION : 9 MG/M2, Q12H
     Route: 042
     Dates: start: 20170922, end: 20171016

REACTIONS (1)
  - Sepsis [Fatal]

NARRATIVE: CASE EVENT DATE: 20171016
